FAERS Safety Report 6233385-4 (Version None)
Quarter: 2009Q2

REPORT INFORMATION
  Report Type: 
  Country: None (occurrence: None)
  Receive Date: 20090617
  Receipt Date: 20090612
  Transmission Date: 20091009
  Serious: Yes (Hospitalization)
  Sender: FDA-Public Use
  Company Number: US-ASTRAZENECA-2009UW15148

PATIENT
  Sex: Female

DRUGS (3)
  1. NEXIUM [Suspect]
     Route: 048
  2. PREDNISONE [Concomitant]
     Dosage: LONG TERM
  3. MANY MEDICATIONS [Concomitant]

REACTIONS (2)
  - ABDOMINAL DISCOMFORT [None]
  - ACUTE RESPIRATORY FAILURE [None]
